FAERS Safety Report 5787119-8 (Version None)
Quarter: 2008Q2

REPORT INFORMATION
  Report Type: 
  Country: None (occurrence: None)
  Receive Date: 20080625
  Receipt Date: 20080618
  Transmission Date: 20081010
  Serious: Yes (Other)
  Sender: FDA-Public Use
  Company Number: AU-NOVOPROD-276381

PATIENT
  Age: 64 Year
  Sex: Male

DRUGS (3)
  1. PROTAPHANE PENFILL [Suspect]
     Indication: DRUG USE FOR UNKNOWN INDICATION
  2. NOVORAPID FLEXPEN [Concomitant]
     Indication: DRUG USE FOR UNKNOWN INDICATION
  3. KLACID                             /00984601/ [Concomitant]
     Indication: ATYPICAL MYCOBACTERIAL INFECTION

REACTIONS (4)
  - ATYPICAL MYCOBACTERIAL INFECTION [None]
  - INJECTION SITE ABSCESS [None]
  - INJECTION SITE INFECTION [None]
  - THERAPEUTIC PRODUCT CONTAMINATION [None]
